FAERS Safety Report 5695165-8 (Version None)
Quarter: 2008Q2

REPORT INFORMATION
  Report Type: 
  Country: None (occurrence: None)
  Receive Date: 20080404
  Receipt Date: 20080326
  Transmission Date: 20081010
  Serious: No
  Sender: FDA-Public Use
  Company Number: JP-PFIZER INC-2008026136

PATIENT
  Age: 43 Year
  Sex: Female

DRUGS (6)
  1. HALCION [Suspect]
     Dosage: DAILY DOSE:.125MG
     Route: 048
  2. SOLANAX [Suspect]
     Dosage: DAILY DOSE:.4MG
     Route: 048
  3. PAXIL [Concomitant]
     Route: 048
  4. LEXOTAN [Concomitant]
     Route: 048
  5. ROHYPNOL [Concomitant]
  6. TETRAMIDE [Concomitant]
     Route: 048

REACTIONS (2)
  - HEPATIC STEATOSIS [None]
  - HYPERCHOLESTEROLAEMIA [None]
